FAERS Safety Report 8593513-2 (Version None)
Quarter: 2012Q3

REPORT INFORMATION
  Report Type: 
  Country: None (occurrence: None)
  Receive Date: 20120814
  Receipt Date: 20120730
  Transmission Date: 20120928
  Serious: Yes (Hospitalization)
  Sender: FDA-Public Use
  Company Number: IN-WATSON-2012-13784

PATIENT
  Age: 11 Month
  Sex: Male
  Weight: 6 kg

DRUGS (2)
  1. AMLODIPINE [Suspect]
     Indication: LOWER RESPIRATORY TRACT INFECTION
     Dosage: 15 MG, X 6 DOSES
     Route: 065
  2. AMLODIPINE [Suspect]
     Indication: MEDICATION ERROR

REACTIONS (16)
  - RENAL FAILURE [None]
  - PULSE ABSENT [None]
  - MEDICATION ERROR [None]
  - TOXICITY TO VARIOUS AGENTS [None]
  - SHOCK [None]
  - HEPATOMEGALY [None]
  - PULMONARY OEDEMA [None]
  - LETHARGY [None]
  - OVERDOSE [None]
  - HYPERGLYCAEMIA [None]
  - RESPIRATORY DISTRESS [None]
  - CARDIAC FAILURE CONGESTIVE [None]
  - METABOLIC ACIDOSIS [None]
  - HYPOTENSION [None]
  - LOSS OF CONSCIOUSNESS [None]
  - ANAEMIA [None]
